FAERS Safety Report 8493510-1 (Version None)
Quarter: 2012Q3

REPORT INFORMATION
  Report Type: 
  Country: None (occurrence: None)
  Receive Date: 20120706
  Receipt Date: 20120627
  Transmission Date: 20120928
  Serious: Yes (Other)
  Sender: FDA-Public Use
  Company Number: US-ASTRAZENECA-2012SE39425

PATIENT
  Age: 62 Year
  Sex: Female
  Weight: 80.3 kg

DRUGS (4)
  1. SEROQUEL XR [Suspect]
     Indication: MAJOR DEPRESSION
     Route: 048
  2. SEROQUEL XR [Suspect]
     Indication: SLEEP DISORDER
     Route: 048
  3. SEROQUEL XR [Suspect]
     Route: 048
  4. SEROQUEL XR [Suspect]
     Route: 048

REACTIONS (4)
  - INSOMNIA [None]
  - MALAISE [None]
  - DRUG DOSE OMISSION [None]
  - CEREBRAL HAEMORRHAGE [None]
